FAERS Safety Report 14204664 (Version 1)
Quarter: 2017Q4

REPORT INFORMATION
  Report Type: Spontaneous
  Country: US (occurrence: US)
  Receive Date: 20171120
  Receipt Date: 20171120
  Transmission Date: 20180321
  Serious: Yes (Other)
  Sender: FDA-Public Use
  Company Number: US-NOVOPROD-573075

PATIENT
  Age: 58 Year
  Sex: Female
  Weight: 89.8 kg

DRUGS (1)
  1. TRESIBA FLEXTOUCH U200 [Suspect]
     Active Substance: INSULIN DEGLUDEC
     Indication: TYPE 2 DIABETES MELLITUS
     Dosage: 64 U, UNK
     Route: 058
     Dates: start: 201710

REACTIONS (1)
  - Tooth infection [Recovering/Resolving]

NARRATIVE: CASE EVENT DATE: 20171003
